FAERS Safety Report 4367685-X (Version None)
Quarter: 2004Q2

REPORT INFORMATION
  Report Type: 
  Country: None (occurrence: None)
  Receive Date: 20040601
  Receipt Date: 20040525
  Transmission Date: 20050107
  Serious: Yes (Hospitalization)
  Sender: FDA-Public Use
  Company Number: FR-GLAXOSMITHKLINE-B0334078A

PATIENT
  Age: 39 Year
  Sex: Male

DRUGS (2)
  1. ZEFFIX [Suspect]
     Indication: HEPATITIS B
     Dosage: 100MG PER DAY
     Route: 048
     Dates: start: 20000101, end: 20040301
  2. AVLOCARDYL [Concomitant]
     Indication: ILL-DEFINED DISORDER
     Route: 048

REACTIONS (4)
  - GINGIVAL BLEEDING [None]
  - HAEMATOMA [None]
  - HAEMORRHAGE [None]
  - PANCYTOPENIA [None]
